FAERS Safety Report 4651701-1 (Version None)
Quarter: 2005Q2

REPORT INFORMATION
  Report Type: 
  Country: None (occurrence: None)
  Receive Date: 20050404
  Receipt Date: 20041129
  Transmission Date: 20051028
  Serious: No
  Sender: FDA-Public Use
  Company Number: USA041184666

PATIENT
  Age: 63 Year
  Sex: Female

DRUGS (13)
  1. CYMBALTA [Suspect]
     Indication: FIBROMYALGIA
     Dosage: 40 MG AT BEDTIME
     Dates: start: 20041001
  2. BLOOD PRESSURE MEDICATION [Concomitant]
  3. XANAX (ALPRAZOLAM DUM) [Concomitant]
  4. ZANAFLEX [Concomitant]
  5. AMBIEN [Concomitant]
  6. HORMONE REPLACEMENT THERAPY [Concomitant]
  7. NEURONTIN (GABAPENTIN PFIZER) [Concomitant]
  8. PROTONIX [Concomitant]
  9. MULTIVITAMIN [Concomitant]
  10. PSYLLIUM [Concomitant]
  11. VITAMIN C [Concomitant]
  12. FIBERCON (POLYCARBOPHIL CALCIUM) [Concomitant]
  13. VITAMIN E [Concomitant]

REACTIONS (8)
  - BLOOD PRESSURE INCREASED [None]
  - DIZZINESS [None]
  - FLUSHING [None]
  - INSOMNIA [None]
  - PALPITATIONS [None]
  - RESPIRATION ABNORMAL [None]
  - SOMNOLENCE [None]
  - SWELLING [None]
